FAERS Safety Report 10387030 (Version 1)
Quarter: 2014Q1

REPORT INFORMATION
  Report Type: Spontaneous
  Country: US (occurrence: None)
  Receive Date: 20140306
  Receipt Date: 20140306
  Transmission Date: 20141002
  Serious: Yes (Other)
  Sender: FDA-Public Use
  Company Number: 163-21880-13043040

PATIENT
  Age: 77 Year
  Sex: Female

DRUGS (8)
  1. REVLIMID (LENALIDOMIDE) (10 MILLIGRAM, CAPSULES) [Suspect]
     Indication: PLASMA CELL MYELOMA
     Dosage: 10 MG, 28 IN 42 D
     Route: 048
     Dates: start: 20130128, end: 20130405
  2. MULTAQ (DRONEDARONE HYDROCHLORIDE) [Concomitant]
  3. COUMADIN (WARFARIN SODIUM) [Concomitant]
  4. ADVAIR DISKUS [Concomitant]
  5. PROTONIX [Concomitant]
  6. METOPROLOL [Concomitant]
  7. ACYCLOVIR (ACICLOVIR) (ACICLOVIR) [Concomitant]
  8. VELCADE (BORTEZOMIB) [Concomitant]

REACTIONS (2)
  - Leukopenia [None]
  - Neutrophil count decreased [None]
